FAERS Safety Report 11202849 (Version 1)
Quarter: 2015Q2

REPORT INFORMATION
  Report Type: Spontaneous
  Country: US (occurrence: None)
  Receive Date: 20150618
  Receipt Date: 20150618
  Transmission Date: 20150821
  Serious: No
  Sender: FDA-Public Use
  Company Number: None

PATIENT
  Age: 54 Year
  Sex: Male
  Weight: 121.1 kg

DRUGS (1)
  1. LORAZEPAM. [Suspect]
     Active Substance: LORAZEPAM
     Dosage: MG  EVERY DAY  PO
     Route: 048
     Dates: start: 20120215, end: 20120226

REACTIONS (1)
  - Confusional state [None]

NARRATIVE: CASE EVENT DATE: 20120223
